FAERS Safety Report 8616294-2 (Version None)
Quarter: 2012Q3

REPORT INFORMATION
  Report Type: 
  Country: None (occurrence: None)
  Receive Date: 20120823
  Receipt Date: 20120815
  Transmission Date: 20120928
  Serious: Yes (Hospitalization, Disabling, Other)
  Sender: FDA-Public Use
  Company Number: US-009507513-2011SP058562

PATIENT

DRUGS (2)
  1. NUVARING [Suspect]
     Indication: CONTRACEPTION
     Dosage: UNK
     Dates: start: 20090201, end: 20091201
  2. COUMADIN [Suspect]
     Indication: PROPHYLAXIS
     Dosage: UNK
     Dates: start: 20091219

REACTIONS (12)
  - HYPERTENSION [None]
  - CHEST PAIN [None]
  - PAIN IN EXTREMITY [None]
  - ABDOMINAL PAIN [None]
  - MIGRAINE [None]
  - MUSCLE STRAIN [None]
  - COUGH [None]
  - NAUSEA [None]
  - TREATMENT NONCOMPLIANCE [None]
  - COAGULOPATHY [None]
  - PULMONARY EMBOLISM [None]
  - DEEP VEIN THROMBOSIS [None]
